FAERS Safety Report 9298029 (Version 1)
Quarter: 2013Q2

REPORT INFORMATION
  Report Type: Spontaneous
  Country: US (occurrence: US)
  Receive Date: 20130520
  Receipt Date: 20130520
  Transmission Date: 20140414
  Serious: No
  Sender: FDA-Public Use
  Company Number: US-BAYER-2013-062182

PATIENT
  Age: 77 Year
  Sex: Female
  Weight: 63.04 kg

DRUGS (6)
  1. ALEVE CAPLET [Suspect]
     Indication: ANALGESIC THERAPY
     Dosage: 1 DF, ONCE
     Route: 048
     Dates: start: 20130513, end: 20130513
  2. ACIPHEX [Concomitant]
  3. TOPROL [Concomitant]
  4. COZAAR [Concomitant]
  5. ZETIA [Concomitant]
  6. BAYER ASPIRIN REGIMEN ADULT LOW STRENGTH [Concomitant]

REACTIONS (1)
  - Pruritus [Not Recovered/Not Resolved]
